FAERS Safety Report 6617443-8 (Version None)
Quarter: 2010Q1

REPORT INFORMATION
  Report Type: 
  Country: None (occurrence: None)
  Receive Date: 20100308
  Receipt Date: 20100225
  Transmission Date: 20100710
  Serious: Yes (Hospitalization)
  Sender: FDA-Public Use
  Company Number: GXKR2010DE02350

PATIENT
  Age: 21 Year
  Sex: Male

DRUGS (3)
  1. TOPIRAMATE [Suspect]
     Indication: CONVULSION
     Dosage: REINTRODUCED 3 WEEKS BEFORE THE SUICIDE ATTEMPT; 400 MG/DAY
     Route: 048
  2. TOPIRAMATE [Suspect]
     Dosage: 40 DF, ONCE/SINGLE
     Route: 048
  3. CLOBAZAM [Concomitant]
     Dosage: 10 MG, BID (FROM DAY 2 TO DAY 8)
     Route: 065

REACTIONS (8)
  - CONFUSIONAL STATE [None]
  - DISORIENTATION [None]
  - INTENTIONAL OVERDOSE [None]
  - NYSTAGMUS [None]
  - SOMNOLENCE [None]
  - STATUS EPILEPTICUS [None]
  - SUICIDE ATTEMPT [None]
  - UNRESPONSIVE TO STIMULI [None]
